FAERS Safety Report 10476733 (Version 1)
Quarter: 2014Q3

REPORT INFORMATION
  Report Type: Spontaneous
  Country: US (occurrence: US)
  Receive Date: 20140925
  Receipt Date: 20140925
  Transmission Date: 20150326
  Serious: Yes (Death)
  Sender: FDA-Public Use
  Company Number: PHEH2014US019080

PATIENT
  Age: 84 Year
  Sex: Male
  Weight: 64.85 kg

DRUGS (1)
  1. ZOMETA [Suspect]
     Active Substance: ZOLEDRONIC ACID
     Indication: PLASMA CELL MYELOMA
     Dosage: 3.3 MG
     Route: 042
     Dates: start: 20120304, end: 20130707

REACTIONS (1)
  - Death [Fatal]

NARRATIVE: CASE EVENT DATE: 20130825
